FAERS Safety Report 8617086-0 (Version None)
Quarter: 2012Q3

REPORT INFORMATION
  Report Type: 
  Country: None (occurrence: None)
  Receive Date: 20120823
  Receipt Date: 20120816
  Transmission Date: 20120928
  Serious: No
  Sender: FDA-Public Use
  Company Number: US-009507513-1208USA008126

PATIENT

DRUGS (1)
  1. PROPECIA [Suspect]

REACTIONS (1)
  - DRUG INEFFECTIVE [None]
